FAERS Safety Report 6910628-2 (Version None)
Quarter: 2010Q3

REPORT INFORMATION
  Report Type: 
  Country: None (occurrence: None)
  Receive Date: 20100806
  Receipt Date: 20100726
  Transmission Date: 20110219
  Serious: Yes (Other)
  Sender: FDA-Public Use
  Company Number: CA-PFIZER INC-2010095037

PATIENT
  Age: 7 Year
  Sex: Male

DRUGS (2)
  1. VORICONAZOLE [Suspect]
     Dosage: UNK
  2. VITAMIN A [Interacting]
     Dosage: UNK

REACTIONS (3)
  - DRUG INTERACTION [None]
  - ERYTHEMA [None]
  - VISUAL IMPAIRMENT [None]
